FAERS Safety Report 6388740-9 (Version None)
Quarter: 2009Q4

REPORT INFORMATION
  Report Type: 
  Country: None (occurrence: None)
  Receive Date: 20091002
  Receipt Date: 20091002
  Transmission Date: 20100525
  Serious: Yes (Life-Threatening, Hospitalization)
  Sender: FDA-Public Use
  Company Number: None

PATIENT
  Age: 80 Year
  Sex: Male
  Weight: 78.0187 kg

DRUGS (1)
  1. TRICOR [Suspect]
     Indication: HYPERCHOLESTEROLAEMIA
     Dosage: 145 MG. ONE QD P.O.
     Route: 048
     Dates: start: 20070117, end: 20090727

REACTIONS (4)
  - ABASIA [None]
  - CHEST PAIN [None]
  - DYSPNOEA [None]
  - QUALITY OF LIFE DECREASED [None]
